FAERS Safety Report 5464738-X (Version None)
Quarter: 2007Q3

REPORT INFORMATION
  Report Type: 
  Country: None (occurrence: None)
  Receive Date: 20070921
  Receipt Date: 20070914
  Transmission Date: 20080115
  Serious: Yes (Hospitalization)
  Sender: FDA-Public Use
  Company Number: SE-GENENTECH-247750

PATIENT
  Sex: Female
  Weight: 67 kg

DRUGS (4)
  1. RITUXIMAB [Suspect]
     Indication: LYMPHOMA
     Dosage: 675 MG, UNK
     Dates: start: 20070110
  2. ROFERON-A [Suspect]
     Indication: LYMPHOMA
     Dosage: 3 MIU, UNK
     Dates: start: 20061227
  3. ROFERON-A [Suspect]
     Dosage: 4 MIU, UNK
  4. ROFERON-A [Suspect]
     Dosage: 5 MIU, UNK

REACTIONS (1)
  - HEMIPARESIS [None]
